FAERS Safety Report 9473107 (Version 2)
Quarter: 2013Q3

REPORT INFORMATION
  Report Type: Spontaneous
  Country: US (occurrence: US)
  Receive Date: 20130823
  Receipt Date: 20130823
  Transmission Date: 20140515
  Serious: No
  Sender: FDA-Public Use
  Company Number: US-BRISTOL-MYERS SQUIBB COMPANY-17444241

PATIENT
  Age: 34 Year
  Sex: Female
  Weight: 68.93 kg

DRUGS (4)
  1. SPRYCEL (CML) TABS 100 MG [Suspect]
     Indication: CHRONIC MYELOID LEUKAEMIA
     Route: 048
     Dates: start: 20130211
  2. PEPCID [Concomitant]
  3. ALLOPURINOL [Concomitant]
  4. LOESTRIN [Concomitant]

REACTIONS (3)
  - Haemoglobin decreased [Unknown]
  - Nausea [Unknown]
  - Pain in extremity [Unknown]
